FAERS Safety Report 25586140 (Version 1)
Quarter: 2025Q3

REPORT INFORMATION
  Report Type: Spontaneous
  Country: KR (occurrence: KR)
  Receive Date: 20250721
  Receipt Date: 20250721
  Transmission Date: 20251021
  Serious: Yes (Other)
  Sender: MYLAN
  Company Number: KR-MYLANLABS-2025M1059261

PATIENT
  Sex: Female
  Weight: 57.2 kg

DRUGS (4)
  1. LYRICA [Suspect]
     Active Substance: PREGABALIN
     Indication: Mesothelioma malignant
     Dosage: 75 MILLIGRAM, QD
     Dates: start: 20230310, end: 20230310
  2. LYRICA [Suspect]
     Active Substance: PREGABALIN
     Dosage: 75 MILLIGRAM, QD
     Route: 065
     Dates: start: 20230310, end: 20230310
  3. LYRICA [Suspect]
     Active Substance: PREGABALIN
     Dosage: 75 MILLIGRAM, QD
     Route: 065
     Dates: start: 20230310, end: 20230310
  4. LYRICA [Suspect]
     Active Substance: PREGABALIN
     Dosage: 75 MILLIGRAM, QD
     Dates: start: 20230310, end: 20230310

REACTIONS (4)
  - Hallucination [Recovered/Resolved]
  - Palpitations [Recovered/Resolved]
  - Dizziness [Recovered/Resolved]
  - Off label use [Unknown]

NARRATIVE: CASE EVENT DATE: 20230310
